FAERS Safety Report 13093997 (Version 1)
Quarter: 2017Q1

REPORT INFORMATION
  Report Type: Spontaneous
  Country: US (occurrence: US)
  Receive Date: 20170106
  Receipt Date: 20170106
  Transmission Date: 20170428
  Serious: Yes (Other)
  Sender: FDA-Public Use
  Company Number: US-BAYER-2016-224695

PATIENT
  Sex: Female

DRUGS (7)
  1. ADVIL [Suspect]
     Active Substance: IBUPROFEN
     Indication: ANXIETY
     Dosage: 2 DF, OM
     Dates: start: 2015
  2. ALEVE [Suspect]
     Active Substance: NAPROXEN SODIUM
     Indication: ANXIETY
     Dosage: UNK
  3. FLANAX CAPS [Suspect]
     Active Substance: NAPROXEN
     Indication: ANXIETY
     Dosage: UNK
  4. ADVIL [Suspect]
     Active Substance: IBUPROFEN
     Indication: MIGRAINE
     Dosage: UNK, OM
  5. ADVIL PM [Suspect]
     Active Substance: DIPHENHYDRAMINE CITRATE\IBUPROFEN
     Indication: ANXIETY
  6. MELATONIN [Concomitant]
     Active Substance: MELATONIN
  7. ADVIL PM [Suspect]
     Active Substance: DIPHENHYDRAMINE CITRATE\IBUPROFEN
     Indication: MIGRAINE
     Dosage: UNK, EVERY NIGHT

REACTIONS (3)
  - Product use issue [None]
  - Drug dependence [Not Recovered/Not Resolved]
  - Migraine [None]

NARRATIVE: CASE EVENT DATE: 2010
